FAERS Safety Report 9797671 (Version 1)
Quarter: 2014Q1

REPORT INFORMATION
  Report Type: Spontaneous
  Country: US (occurrence: US)
  Receive Date: 20140106
  Receipt Date: 20140106
  Transmission Date: 20141002
  Serious: Yes (Other)
  Sender: FDA-Public Use
  Company Number: US-PFIZER INC-2014001276

PATIENT
  Age: 55 Year
  Sex: Male
  Weight: 72.6 kg

DRUGS (3)
  1. DILANTIN-125 [Suspect]
     Indication: EPILEPSY
     Dosage: 100 MG, 3X/DAY
     Dates: start: 200907
  2. DILANTIN-125 [Suspect]
     Dosage: 100 MG, 4X/DAY
  3. ASPIRIN [Concomitant]
     Dosage: 375 MG, 1X/DAY

REACTIONS (1)
  - Convulsion [Recovered/Resolved]
